FAERS Safety Report 15638785 (Version 1)
Quarter: 2018Q4

REPORT INFORMATION
  Report Type: Spontaneous
  Country: US (occurrence: US)
  Receive Date: 20181120
  Receipt Date: 20181120
  Transmission Date: 20190205
  Serious: No
  Sender: FDA-Public Use
  Company Number: US-PERRIGO-18US004146

PATIENT
  Age: 4 Year
  Sex: Male
  Weight: 16.78 kg

DRUGS (1)
  1. POLYETHYLENE GLYCOL 3350. [Suspect]
     Active Substance: POLYETHYLENE GLYCOL 3350
     Indication: CONSTIPATION
     Dosage: 8.5 G, QD
     Route: 048
     Dates: start: 20180321, end: 20180408

REACTIONS (6)
  - Anger [Recovered/Resolved]
  - Incorrect product administration duration [Recovered/Resolved]
  - Decreased eye contact [Recovered/Resolved]
  - Product use issue [Recovered/Resolved]
  - Aggression [Recovered/Resolved]
  - Communication disorder [Recovered/Resolved]

NARRATIVE: CASE EVENT DATE: 20180321
